FAERS Safety Report 20419346 (Version 7)
Quarter: 2024Q1

REPORT INFORMATION
  Report Type: Other
  Country: BE (occurrence: None)
  Receive Date: 20220203
  Receipt Date: 20240311
  Transmission Date: 20240409
  Serious: Yes (Hospitalization, Other)
  Sender: FDA-Public Use
  Company Number: BE-ROCHE-2990115

PATIENT
  Age: 57 Year
  Sex: Female
  Weight: 96.2 kg

DRUGS (18)
  1. ALECTINIB [Suspect]
     Active Substance: ALECTINIB
     Indication: Non-small cell lung cancer
     Dosage: .PRESTUDY DOSE
     Route: 065
     Dates: start: 20190115
  2. ALECTINIB [Suspect]
     Active Substance: ALECTINIB
     Dosage: ON 20/DEC/2021, SHE RECEIVED MOST RECENT DOSE OF ALECTINIB 600 MG PRIOR TO THE EVENT. RECEIVED PRIOR
     Route: 048
     Dates: start: 20210714
  3. INSULIN GLARGINE [Concomitant]
     Active Substance: INSULIN GLARGINE
     Indication: Type 2 diabetes mellitus
     Route: 058
  4. METFORMIN [Concomitant]
     Active Substance: METFORMIN HYDROCHLORIDE
     Indication: Type 2 diabetes mellitus
     Dates: start: 2020
  5. XGEVA [Concomitant]
     Active Substance: DENOSUMAB
     Indication: Metastases to bone
     Route: 058
     Dates: start: 2019
  6. D VITAL FORTE [Concomitant]
     Indication: Metastases to bone
     Route: 048
     Dates: start: 2019
  7. FOLIC ACID [Concomitant]
     Active Substance: FOLIC ACID
     Indication: Prophylaxis
     Route: 048
  8. PANTOPRAZOLE SODIUM [Concomitant]
     Active Substance: PANTOPRAZOLE SODIUM
     Indication: Prophylaxis
     Route: 048
  9. LIPITOR [Concomitant]
     Active Substance: ATORVASTATIN CALCIUM
     Indication: Hyperlipidaemia
     Route: 048
     Dates: start: 20210323
  10. TRAMADOL HYDROCHLORIDE [Concomitant]
     Active Substance: TRAMADOL HYDROCHLORIDE
     Route: 042
     Dates: start: 20211018, end: 20211021
  11. ALDACTONE [Concomitant]
     Active Substance: SPIRONOLACTONE
     Indication: Hypervolaemia
     Route: 048
     Dates: start: 20211028, end: 20211220
  12. ALDACTONE [Concomitant]
     Active Substance: SPIRONOLACTONE
     Route: 048
     Dates: start: 20211221, end: 20230331
  13. ALDACTONE [Concomitant]
     Active Substance: SPIRONOLACTONE
     Route: 048
     Dates: start: 20230408
  14. LASIX [Concomitant]
     Active Substance: FUROSEMIDE
     Indication: Hypervolaemia
     Route: 048
     Dates: start: 20211029, end: 20211220
  15. LASIX [Concomitant]
     Active Substance: FUROSEMIDE
     Route: 048
     Dates: start: 20211221, end: 20220317
  16. ACETAMINOPHEN [Concomitant]
     Active Substance: ACETAMINOPHEN
     Route: 048
     Dates: start: 20211220, end: 20211224
  17. ULTRA-K [Concomitant]
     Indication: Prophylaxis
     Dosage: 3 OTHER
     Route: 048
     Dates: start: 20211222, end: 20220117
  18. MAGNETOP [Concomitant]
     Route: 048
     Dates: start: 20220317

REACTIONS (4)
  - Pulmonary embolism [Recovered/Resolved]
  - Respiratory tract infection [Recovered/Resolved]
  - Pericardial effusion [Recovered/Resolved]
  - Pleural effusion [Recovered/Resolved]

NARRATIVE: CASE EVENT DATE: 20211220
